FAERS Safety Report 8490074-3 (Version None)
Quarter: 2012Q2

REPORT INFORMATION
  Report Type: 
  Country: None (occurrence: None)
  Receive Date: 20120626
  Receipt Date: 20120611
  Transmission Date: 20120825
  Serious: Yes (Other)
  Sender: FDA-Public Use
  Company Number: 2011MA014745

PATIENT
  Sex: Female
  Weight: 141.0687 kg

DRUGS (14)
  1. WELLBUTRIN [Concomitant]
  2. SERTRALINE HYDROCHLORIDE [Concomitant]
  3. SEROQUEL [Concomitant]
  4. EFFEXOR [Concomitant]
  5. METOCLOPRAMIDE [Suspect]
     Indication: GASTROOESOPHAGEAL REFLUX DISEASE
     Dosage: Q6H PRN;PO
     Route: 048
     Dates: start: 20061030, end: 20110720
  6. METOCLOPRAMIDE [Suspect]
     Indication: NAUSEA
     Dosage: Q6H PRN;PO
     Route: 048
     Dates: start: 20061030, end: 20110720
  7. XANAX [Concomitant]
  8. CARAFATE [Concomitant]
  9. OMEPRAZOLE [Concomitant]
  10. ZOLOFT [Concomitant]
  11. TOPAMAX [Concomitant]
  12. PROMETHAZINE [Concomitant]
  13. DIETARY SUPPLEMENTS [Concomitant]
  14. ABILIFY [Concomitant]

REACTIONS (14)
  - EMOTIONAL DISORDER [None]
  - NAUSEA [None]
  - TARDIVE DYSKINESIA [None]
  - MENTAL DISORDER [None]
  - HYPOGLYCAEMIA [None]
  - CONDITION AGGRAVATED [None]
  - INSOMNIA [None]
  - SCIATICA [None]
  - ULCER [None]
  - HYPERTENSION [None]
  - GASTROOESOPHAGEAL REFLUX DISEASE [None]
  - ECONOMIC PROBLEM [None]
  - RESTLESS LEGS SYNDROME [None]
  - ANXIETY [None]
